FAERS Safety Report 7992525-7 (Version None)
Quarter: 2011Q4

REPORT INFORMATION
  Report Type: 
  Country: None (occurrence: None)
  Receive Date: 20111219
  Receipt Date: 20111209
  Transmission Date: 20120403
  Serious: Yes (Hospitalization)
  Sender: FDA-Public Use
  Company Number: FR-PFIZER INC-2011300638

PATIENT
  Age: 60 Year
  Sex: Female

DRUGS (11)
  1. FLUOROURACIL [Suspect]
     Dosage: 675 MG, CYCLIC
     Route: 013
     Dates: start: 20111121, end: 20111122
  2. CAMPTOSAR [Suspect]
     Indication: METASTASES TO LIVER
     Dosage: 180 MG/M2, CYCLIC
     Route: 013
     Dates: start: 20111108, end: 20111108
  3. FLUOROURACIL [Suspect]
     Indication: METASTASES TO LIVER
     Dosage: 2800 MG/M2, IN SPLIT DAILY DOSES FOR 3 DAYS
     Route: 013
     Dates: start: 20111108
  4. ERBITUX [Suspect]
     Indication: METASTASES TO LIVER
     Dosage: 500 MG/M2, CYCLIC
     Route: 042
     Dates: start: 20111107, end: 20111107
  5. ELOXATIN [Suspect]
     Indication: METASTASES TO LIVER
     Dosage: 85 MG/M2, IN SPLIT DAILY DOSES FOR 3 DAYS
     Route: 013
     Dates: start: 20111108
  6. ELOXATIN [Suspect]
     Dosage: 82.500 MG/M2, CYCLIC
     Route: 013
     Dates: start: 20111121, end: 20111121
  7. NEXIUM [Concomitant]
     Dosage: 80 MG DAILY
     Dates: start: 20111107
  8. ALUMINUM HYDROXIDE AND MAGNESIUM TRISILICATE [Concomitant]
     Dosage: DAILY
     Dates: start: 20111107
  9. LORAZEPAM [Concomitant]
     Dosage: 15 TABLETS A DAY
     Dates: start: 20111107
  10. CAMPTOSAR [Suspect]
     Dosage: 340 MG, CYCLIC
     Route: 013
     Dates: start: 20111121, end: 20111121
  11. ERBITUX [Suspect]
     Dosage: 965 MG, CYCLIC
     Route: 042
     Dates: start: 20111121, end: 20111121

REACTIONS (4)
  - DECREASED APPETITE [None]
  - FEBRILE NEUTROPENIA [None]
  - ABDOMINAL PAIN [None]
  - PYELONEPHRITIS [None]
